FAERS Safety Report 8417091-3 (Version None)
Quarter: 2012Q2

REPORT INFORMATION
  Report Type: 
  Country: None (occurrence: None)
  Receive Date: 20120606
  Receipt Date: 20120530
  Transmission Date: 20120825
  Serious: Yes (Other)
  Sender: FDA-Public Use
  Company Number: US-JNJFOC-20120521378

PATIENT
  Sex: Male
  Weight: 90.72 kg

DRUGS (10)
  1. SPIRIVA [Concomitant]
     Indication: LUNG DISORDER
     Route: 055
  2. LEVOFLOXACIN [Suspect]
     Indication: PNEUMONIA
     Route: 048
     Dates: start: 20120414, end: 20120418
  3. COMBIVENT [Concomitant]
     Indication: LUNG DISORDER
     Route: 055
  4. PREDNISONE TAB [Concomitant]
     Indication: LUNG DISORDER
     Dosage: EVERY OTHER DAY
     Route: 048
  5. TOPROL-XL [Concomitant]
     Indication: BLOOD PRESSURE
     Route: 048
  6. GLYBURIDE [Concomitant]
     Indication: DIABETES MELLITUS
     Route: 048
  7. THEOPHYLLINE [Concomitant]
     Indication: LUNG DISORDER
     Route: 048
  8. TOPROL-XL [Concomitant]
     Indication: CARDIAC DISORDER
     Route: 048
  9. JANUVIA [Concomitant]
     Indication: DIABETES MELLITUS
     Route: 065
  10. AMILORIDE HYDROCHLORIDE [Concomitant]
     Indication: DIURETIC THERAPY
     Route: 065
     Dates: start: 20110101

REACTIONS (2)
  - TENDON RUPTURE [None]
  - THROMBOSIS [None]
